FAERS Safety Report 5712345-3 (Version None)
Quarter: 2008Q2

REPORT INFORMATION
  Report Type: 
  Country: None (occurrence: None)
  Receive Date: 20080421
  Receipt Date: 20080421
  Transmission Date: 20081010
  Serious: Yes (Other)
  Sender: FDA-Public Use
  Company Number: None

PATIENT
  Sex: Female
  Weight: 99.7913 kg

DRUGS (2)
  1. CYMBALTA [Suspect]
     Indication: ANXIETY
     Dosage: 60 MG. ONCE PER DAY PO
     Route: 048
     Dates: start: 20070725, end: 20080420
  2. CYMBALTA [Suspect]
     Indication: MIGRAINE
     Dosage: 60 MG. ONCE PER DAY PO
     Route: 048
     Dates: start: 20070725, end: 20080420

REACTIONS (1)
  - BLOOD PRESSURE INCREASED [None]
